FAERS Safety Report 7950582-8 (Version None)
Quarter: 2011Q4

REPORT INFORMATION
  Report Type: 
  Country: None (occurrence: None)
  Receive Date: 20111130
  Receipt Date: 20111123
  Transmission Date: 20120403
  Serious: Yes (Other)
  Sender: FDA-Public Use
  Company Number: PL-AMGEN-POLSP2011062270

PATIENT
  Sex: Female

DRUGS (3)
  1. ENBREL [Suspect]
     Indication: RHEUMATOID ARTHRITIS
     Dosage: 50 MG, 1X/WEEK
     Dates: start: 20110225, end: 20110914
  2. METHOTREXATE [Concomitant]
     Dosage: UNK
  3. METYPRED                           /00049601/ [Concomitant]
     Dosage: UNK

REACTIONS (1)
  - NEOPLASM [None]
